FAERS Safety Report 5147566-4 (Version None)
Quarter: 2006Q4

REPORT INFORMATION
  Report Type: 
  Country: None (occurrence: None)
  Receive Date: 20061106
  Receipt Date: 20061024
  Transmission Date: 20070319
  Serious: Yes (Other)
  Sender: FDA-Public Use
  Company Number: 2006129984

PATIENT
  Sex: Male

DRUGS (3)
  1. CARDURA [Suspect]
     Indication: HYPERTENSION
     Dosage: 4 MG (4 MG, 1 IN 1 D)
  2. CARDURA [Suspect]
     Indication: PROSTATE EXAMINATION ABNORMAL
     Dosage: 4 MG (4 MG, 1 IN 1 D)
  3. COZAAR [Concomitant]

REACTIONS (3)
  - BLOOD PRESSURE DECREASED [None]
  - DIABETES MELLITUS [None]
  - HEART RATE INCREASED [None]
